FAERS Safety Report 10088976 (Version 1)
Quarter: 2014Q2

REPORT INFORMATION
  Report Type: Report from Study
  Country: US (occurrence: US)
  Receive Date: 20140421
  Receipt Date: 20140421
  Transmission Date: 20141212
  Serious: Yes (Hospitalization, Other)
  Sender: FDA-Public Use
  Company Number: PHEH2014US007782

PATIENT
  Age: 64 Year
  Sex: Male

DRUGS (2)
  1. GLEEVEC [Suspect]
     Indication: HEPATIC CANCER
     Dosage: 400 MG ONCE DAILY
     Route: 048
  2. GLEEVEC [Suspect]
     Indication: OFF LABEL USE
     Dosage: UNK
     Dates: start: 20140401

REACTIONS (2)
  - Intestinal mass [Unknown]
  - Myocardial infarction [Unknown]
